FAERS Safety Report 9098906 (Version 2)
Quarter: 2013Q2

REPORT INFORMATION
  Report Type: Spontaneous
  Country: US (occurrence: US)
  Receive Date: 20130213
  Receipt Date: 20130412
  Transmission Date: 20140414
  Serious: Yes (Other)
  Sender: FDA-Public Use
  Company Number: US-PFIZER INC-2013053836

PATIENT
  Age: 77 Year
  Sex: Female
  Weight: 70.3 kg

DRUGS (6)
  1. CELEBREX [Suspect]
     Indication: ARTHRITIS
     Dosage: 200 MG, UNK
     Route: 048
  2. ASPIRIN [Concomitant]
     Dosage: 81 MG, UNK
  3. PRILOSEC [Concomitant]
     Dosage: UNK
  4. METOPROLOL [Concomitant]
     Indication: HYPERTENSION
     Dosage: UNK
  5. NITRO-BID [Concomitant]
     Dosage: UNK
  6. LORTAB [Concomitant]
     Dosage: 7.5/500 MG, UNK

REACTIONS (1)
  - Cardiac disorder [Unknown]
